FAERS Safety Report 11547294 (Version 1)
Quarter: 2015Q3

REPORT INFORMATION
  Report Type: Spontaneous
  Country: CN (occurrence: CN)
  Receive Date: 20150924
  Receipt Date: 20150924
  Transmission Date: 20151125
  Serious: Yes (Hospitalization)
  Sender: FDA-Public Use
  Company Number: CN-MYLANLABS-2015M1031902

PATIENT

DRUGS (3)
  1. PROPRANOLOL [Suspect]
     Active Substance: PROPRANOLOL\PROPRANOLOL HYDROCHLORIDE
     Indication: OFF LABEL USE
     Dosage: 1.5 MG/KG/DAY ON THE SECOND DAY DIVIDED INTO 2 DOSES, ADMINISTERED EVERY 12 HOURS
     Route: 048
  2. PROPRANOLOL [Suspect]
     Active Substance: PROPRANOLOL\PROPRANOLOL HYDROCHLORIDE
     Dosage: 2 MG/KG/DAY ON THE THIRD DAY DIVIDED INTO 2 DOSES, ADMINISTERED EVERY 12 HOURS
     Route: 048
  3. PROPRANOLOL [Suspect]
     Active Substance: PROPRANOLOL\PROPRANOLOL HYDROCHLORIDE
     Indication: INFANTILE HAEMANGIOMA
     Dosage: 1 MG/KG/DAY ON THE FIRST DAY, DIVIDED INTO 2 DOSES, ADMINISTERED EVERY 12 HOURS
     Route: 048

REACTIONS (4)
  - Blood creatine phosphokinase MB increased [Unknown]
  - Blood lactate dehydrogenase increased [Unknown]
  - Gamma-glutamyltransferase increased [Unknown]
  - Alanine aminotransferase increased [Unknown]
